FAERS Safety Report 6051013-8 (Version None)
Quarter: 2009Q1

REPORT INFORMATION
  Report Type: 
  Country: None (occurrence: None)
  Receive Date: 20090126
  Receipt Date: 20081215
  Transmission Date: 20090719
  Serious: No
  Sender: FDA-Public Use
  Company Number: US-TYCO HEALTHCARE/MALLINCKRODT-T200802111

PATIENT
  Sex: Female
  Weight: 63.492 kg

DRUGS (1)
  1. OPTIRAY 300 [Suspect]
     Indication: COMPUTERISED TOMOGRAM
     Dosage: 100 ML (CC), SINGLE
     Route: 042
     Dates: start: 20081211, end: 20081211

REACTIONS (4)
  - EYE PRURITUS [None]
  - LACRIMATION INCREASED [None]
  - SNEEZING [None]
  - THROAT IRRITATION [None]
